FAERS Safety Report 8330935-9 (Version None)
Quarter: 2012Q2

REPORT INFORMATION
  Report Type: 
  Country: None (occurrence: None)
  Receive Date: 20120502
  Receipt Date: 20120403
  Transmission Date: 20120825
  Serious: No
  Sender: FDA-Public Use
  Company Number: US-AMGEN-USASP2011035851

PATIENT
  Age: 56 Year
  Sex: Female

DRUGS (1)
  1. ENBREL [Suspect]
     Indication: PSORIASIS
     Dosage: 50 MG, QWK
     Dates: start: 20040601, end: 20110401

REACTIONS (5)
  - ARTHRALGIA [None]
  - INSOMNIA [None]
  - PSORIASIS [None]
  - DRUG INEFFECTIVE [None]
  - ALOPECIA [None]
